FAERS Safety Report 6634013-6 (Version None)
Quarter: 2010Q1

REPORT INFORMATION
  Report Type: 
  Country: None (occurrence: None)
  Receive Date: 20100315
  Receipt Date: 20100304
  Transmission Date: 20100710
  Serious: Yes (Other)
  Sender: FDA-Public Use
  Company Number: PHHY2010MX13339

PATIENT
  Age: 56 Year
  Sex: Male

DRUGS (5)
  1. GALVUS MET [Suspect]
     Indication: DIABETES MELLITUS
     Dosage: 2 TABLETS DAILY
     Route: 048
     Dates: start: 20090301
  2. APROVEL [Concomitant]
  3. LEVEMIR [Concomitant]
  4. SALOFALK [Concomitant]
  5. ESPAVEN ENZIMATICO [Concomitant]

REACTIONS (7)
  - ABDOMINAL DISTENSION [None]
  - BLOOD BILIRUBIN INCREASED [None]
  - DISCOMFORT [None]
  - FATIGUE [None]
  - HEPATITIS [None]
  - MALAISE [None]
  - OCULAR ICTERUS [None]
